FAERS Safety Report 25670808 (Version 6)
Quarter: 2025Q4

REPORT INFORMATION
  Report Type: Report from Study
  Country: CA (occurrence: CA)
  Receive Date: 20250812
  Receipt Date: 20251223
  Transmission Date: 20260118
  Serious: Yes (Hospitalization, Other)
  Sender: PFIZER
  Company Number: CA-PFIZER INC-202500160253

PATIENT
  Age: 87 Year
  Sex: Female
  Weight: 120 kg

DRUGS (4)
  1. IXIFI [Suspect]
     Active Substance: INFLIXIMAB-QBTX
     Indication: Colitis ulcerative
     Dosage: 5 MG/KG, EVERY 8 WEEKS
     Route: 042
     Dates: start: 20250617
  2. IXIFI [Suspect]
     Active Substance: INFLIXIMAB-QBTX
     Dosage: 600 MG, AFTER 9 WEEKS AND 6 DAYS (5 MG/KG, EVERY 8 WEEKS)
     Route: 042
     Dates: start: 20250825
  3. IXIFI [Suspect]
     Active Substance: INFLIXIMAB-QBTX
     Dosage: 575 MG, AFTER 8 WEEKS AND 1 DAY (5MG/KG, EVERY 8 WEEKS)
     Route: 042
     Dates: start: 20251021
  4. IXIFI [Suspect]
     Active Substance: INFLIXIMAB-QBTX
     Dosage: 575 MG,  8 WEEKS ((5MG/KG, EVERY 8 WEEKS)
     Route: 042
     Dates: start: 20251216

REACTIONS (4)
  - Post procedural infection [Unknown]
  - Fall [Unknown]
  - Condition aggravated [Not Recovered/Not Resolved]
  - Inappropriate schedule of product administration [Unknown]

NARRATIVE: CASE EVENT DATE: 20250101
